FAERS Safety Report 8110893-2 (Version None)
Quarter: 2012Q1

REPORT INFORMATION
  Report Type: 
  Country: None (occurrence: None)
  Receive Date: 20120203
  Receipt Date: 20120126
  Transmission Date: 20120608
  Serious: Yes (Hospitalization)
  Sender: FDA-Public Use
  Company Number: JP-CELGENEUS-087-21660-11112732

PATIENT
  Sex: Female
  Weight: 45 kg

DRUGS (3)
  1. ABRAXANE [Suspect]
     Indication: BREAST CANCER METASTATIC
     Dosage: 348 MILLIGRAM
     Route: 041
     Dates: start: 20110201, end: 20110906
  2. ABRAXANE [Suspect]
     Dosage: 348 MILLIGRAM
     Route: 041
     Dates: start: 20110927, end: 20110927
  3. ATELEC [Concomitant]
     Indication: HYPERTENSION
     Route: 048
     Dates: start: 20080904

REACTIONS (1)
  - HYPOAESTHESIA [None]
